FAERS Safety Report 9709264 (Version 2)
Quarter: 2013Q4

REPORT INFORMATION
  Report Type: Spontaneous
  Country: GB (occurrence: GB)
  Receive Date: 20131125
  Receipt Date: 20131125
  Transmission Date: 20140711
  Serious: Yes (Other)
  Sender: FDA-Public Use
  Company Number: GB-ABBVIE-13X-167-1142376-00

PATIENT
  Age: 29 Year
  Sex: Male

DRUGS (8)
  1. EPILIM [Suspect]
     Indication: EPILEPSY
     Route: 048
     Dates: start: 2010
  2. EPILIM [Suspect]
     Indication: TUBEROUS SCLEROSIS
  3. TOPAMAX [Concomitant]
     Indication: PRODUCT USED FOR UNKNOWN INDICATION
  4. ASPIRIN [Concomitant]
     Indication: PRODUCT USED FOR UNKNOWN INDICATION
  5. CETIRIZINE [Concomitant]
     Indication: PRODUCT USED FOR UNKNOWN INDICATION
  6. METOPROLOL [Concomitant]
     Indication: PRODUCT USED FOR UNKNOWN INDICATION
  7. RAMIPRIL [Concomitant]
     Indication: PRODUCT USED FOR UNKNOWN INDICATION
  8. SIMVASTATIN [Concomitant]
     Indication: PRODUCT USED FOR UNKNOWN INDICATION

REACTIONS (9)
  - Visual impairment [Unknown]
  - Convulsion [Unknown]
  - Pruritus [Unknown]
  - Vision blurred [Unknown]
  - Mood swings [Unknown]
  - Chest pain [Unknown]
  - Mental disorder [Unknown]
  - Dizziness [Unknown]
  - Alopecia [Unknown]
